FAERS Safety Report 9969209 (Version 2)
Quarter: 2014Q2

REPORT INFORMATION
  Report Type: Spontaneous
  Country: IT (occurrence: IT)
  Receive Date: 20140306
  Receipt Date: 20140421
  Transmission Date: 20141212
  Serious: Yes (Hospitalization)
  Sender: FDA-Public Use
  Company Number: IT-ROCHE-1358931

PATIENT
  Age: 52 Year
  Sex: Female

DRUGS (7)
  1. RIVOTRIL [Suspect]
     Indication: PRODUCT USED FOR UNKNOWN INDICATION
     Route: 065
     Dates: start: 20140227, end: 20140227
  2. VENLAFAXINE [Concomitant]
  3. CITALOPRAM [Concomitant]
     Route: 048
  4. GABAPENTIN [Concomitant]
     Route: 048
  5. PALEXIA [Concomitant]
     Indication: FIBROMYALGIA
     Route: 048
  6. TAVOR (ITALY) [Concomitant]
     Route: 048
  7. EN [Concomitant]
     Route: 048

REACTIONS (4)
  - Bradykinesia [Recovering/Resolving]
  - Intentional self-injury [Recovering/Resolving]
  - Bradyphrenia [Recovering/Resolving]
  - Drug abuse [Unknown]
